FAERS Safety Report 8859876 (Version 1)
Quarter: 2012Q4

REPORT INFORMATION
  Report Type: 
  Country: US (occurrence: US)
  Receive Date: 20121025
  Receipt Date: 20121025
  Transmission Date: 20130627
  Serious: No
  Sender: FDA-Public Use
  Company Number: US-ABBOTT-12P-163-0986398-00

PATIENT
  Age: 32 None
  Sex: Female
  Weight: 71.28 kg

DRUGS (6)
  1. LUPRON DEPOT 3.75 MG [Suspect]
     Indication: ENDOMETRIOSIS
     Route: 030
     Dates: start: 20120724, end: 20120724
  2. LUPRON DEPOT [Suspect]
     Indication: ENDOMETRIOSIS
     Route: 030
     Dates: start: 20120913, end: 20120913
  3. AMBIEN [Concomitant]
     Indication: PRODUCT USED FOR UNKNOWN INDICATION
  4. AYGESTIN [Concomitant]
     Indication: PRODUCT USED FOR UNKNOWN INDICATION
  5. XANAX [Concomitant]
     Indication: PRODUCT USED FOR UNKNOWN INDICATION
  6. ANAPROX [Concomitant]
     Indication: PRODUCT USED FOR UNKNOWN INDICATION

REACTIONS (8)
  - Myalgia [Unknown]
  - Bone pain [Unknown]
  - Flank pain [Recovering/Resolving]
  - Pollakiuria [Recovering/Resolving]
  - Nausea [Recovering/Resolving]
  - Chills [Recovering/Resolving]
  - Dysuria [Recovering/Resolving]
  - Urinary tract infection [Recovering/Resolving]
